FAERS Safety Report 6240538-8 (Version None)
Quarter: 2009Q2

REPORT INFORMATION
  Report Type: 
  Country: None (occurrence: None)
  Receive Date: 20090623
  Receipt Date: 20080903
  Transmission Date: 20091009
  Serious: No
  Sender: FDA-Public Use
  Company Number: US-ASTRAZENECA-2008UW18252

PATIENT
  Age: 65 Year
  Sex: Female
  Weight: 49.9 kg

DRUGS (6)
  1. PULMICORT FLEXHALER [Suspect]
     Indication: ASTHMA
     Dosage: 180 UG TWO PUFFS ONCE DAILY
     Route: 055
  2. ALBUTEROL [Concomitant]
  3. HYDROCHLOROTHIAZIDE [Concomitant]
  4. SYNTHROID [Concomitant]
  5. CALCIUM AND VITAMIN D [Concomitant]
  6. METAMUCIL [Concomitant]

REACTIONS (6)
  - CHEST PAIN [None]
  - COUGH [None]
  - DYSGEUSIA [None]
  - DYSPHONIA [None]
  - INCREASED UPPER AIRWAY SECRETION [None]
  - WHEEZING [None]
